FAERS Safety Report 5841113-7 (Version None)
Quarter: 2008Q3

REPORT INFORMATION
  Report Type: 
  Country: None (occurrence: None)
  Receive Date: 20080807
  Receipt Date: 20080807
  Transmission Date: 20090109
  Serious: Yes (Other)
  Sender: FDA-Public Use
  Company Number: None

PATIENT
  Age: 61 Year
  Sex: Female
  Weight: 75.2971 kg

DRUGS (1)
  1. ADVAIR DISKUS 250/50 [Suspect]
     Indication: PLEURISY
     Dosage: 1 PUFF 2 X DAY INHAL
     Route: 055
     Dates: start: 20080515, end: 20080729

REACTIONS (5)
  - ASTHMA [None]
  - BRONCHOSPASM [None]
  - CONDITION AGGRAVATED [None]
  - COUGH [None]
  - RESPIRATORY FAILURE [None]
